FAERS Safety Report 9554436 (Version 5)
Quarter: 2013Q4

REPORT INFORMATION
  Report Type: Spontaneous
  Country: US (occurrence: US)
  Receive Date: 20130925
  Receipt Date: 20131118
  Transmission Date: 20140711
  Serious: Yes (Hospitalization, Other)
  Sender: FDA-Public Use
  Company Number: US-CELGENEUS-163-21880-13092208

PATIENT
  Sex: Female
  Weight: 95.3 kg

DRUGS (1)
  1. REVLIMID [Suspect]
     Indication: PLASMA CELL MYELOMA
     Dosage: 15 MILLIGRAM
     Route: 048
     Dates: start: 20130828

REACTIONS (6)
  - Pharyngeal ulceration [Unknown]
  - Nausea [Unknown]
  - Rash [Unknown]
  - Chills [Unknown]
  - Body temperature increased [Unknown]
  - Candida infection [Unknown]
